FAERS Safety Report 23024500 (Version 1)
Quarter: 2023Q4

REPORT INFORMATION
  Report Type: Spontaneous
  Country: GB (occurrence: GB)
  Receive Date: 20231004
  Receipt Date: 20231004
  Transmission Date: 20240109
  Serious: Yes (Disabling)
  Sender: FDA-Public Use
  Company Number: GB-MHRA-MED-202205111034451290-PDQVL

PATIENT
  Sex: Male

DRUGS (1)
  1. FINASTERIDE [Suspect]
     Active Substance: FINASTERIDE
     Indication: Androgenetic alopecia
     Dosage: 1 MILLIGRAM, DAILY
     Route: 065

REACTIONS (3)
  - Seborrhoeic dermatitis [Not Recovered/Not Resolved]
  - Blepharitis [Not Recovered/Not Resolved]
  - Hypogonadism [Not Recovered/Not Resolved]
